FAERS Safety Report 8669606 (Version 3)
Quarter: 2012Q4

REPORT INFORMATION
  Report Type: 
  Country: JP (occurrence: JP)
  Receive Date: 20120718
  Receipt Date: 20120830
  Transmission Date: 20130627
  Serious: Yes (Other)
  Sender: FDA-Public Use
  Company Number: JP-009507513-1207JPN002329

PATIENT

DRUGS (3)
  1. GASTER [Suspect]
     Indication: GASTRITIS
     Dosage: 20 mg, bid
     Route: 048
     Dates: start: 20120625, end: 20120627
  2. GASTER [Suspect]
     Dosage: 10 mg, qd
     Route: 048
  3. SELBEX [Concomitant]
     Indication: EPIGASTRIC DISCOMFORT
     Dosage: UNK
     Route: 048
     Dates: end: 20120627

REACTIONS (2)
  - Rash papular [Recovered/Resolved]
  - Liver function test abnormal [Recovered/Resolved]
